FAERS Safety Report 4406474-4 (Version None)
Quarter: 2004Q3

REPORT INFORMATION
  Report Type: 
  Country: None (occurrence: None)
  Receive Date: 20040715
  Receipt Date: 20040630
  Transmission Date: 20050211
  Serious: Yes (Death)
  Sender: FDA-Public Use
  Company Number: 230017M04GBR

PATIENT
  Age: 63 Year
  Sex: Female
  Weight: 57 kg

DRUGS (4)
  1. REBIF [Suspect]
     Indication: MULTIPLE SCLEROSIS
     Dosage: 22 MCG, 3 IN 1 WEEKS, NOT
     Dates: start: 20031022, end: 20040201
  2. BISOPROLOL FUMARATE [Concomitant]
  3. CYCLO-PROGYNOVA [Concomitant]
  4. CITALOPRAM [Concomitant]

REACTIONS (3)
  - BRONCHIAL CARCINOMA [None]
  - PALPITATIONS [None]
  - SMALL CELL LUNG CANCER STAGE UNSPECIFIED [None]
